FAERS Safety Report 20135857 (Version 1)
Quarter: 2021Q4

REPORT INFORMATION
  Report Type: Report from Study
  Country: IN (occurrence: IN)
  Receive Date: 20211201
  Receipt Date: 20211201
  Transmission Date: 20220303
  Serious: Yes (Hospitalization)
  Sender: FDA-Public Use
  Company Number: IN-BRISTOL-MYERS SQUIBB COMPANY-BMS-2021-128017

PATIENT
  Age: 56 Year
  Sex: Female
  Weight: 37 kg

DRUGS (1)
  1. NIVOLUMAB [Suspect]
     Active Substance: NIVOLUMAB
     Indication: Transitional cell carcinoma
     Dosage: 111 MILLIGRAM, Q2WK
     Route: 042
     Dates: start: 20211113

REACTIONS (1)
  - Blood urine present [Unknown]
